FAERS Safety Report 8239479-6 (Version None)
Quarter: 2012Q1

REPORT INFORMATION
  Report Type: 
  Country: None (occurrence: None)
  Receive Date: 20120328
  Receipt Date: 20120323
  Transmission Date: 20120608
  Serious: No
  Sender: FDA-Public Use
  Company Number: US-PFIZER INC-2012076111

PATIENT
  Sex: Female
  Weight: 45.351 kg

DRUGS (2)
  1. XALATAN [Suspect]
     Indication: GLAUCOMA
     Dosage: ONE DROP IN BOTH EYES ONCE AT NIGHT
     Route: 047
  2. COSOPT [Concomitant]
     Dosage: IN RIGHT EYE, 2X/DAY
     Route: 047

REACTIONS (2)
  - ORAL HERPES [None]
  - BLISTER [None]
